FAERS Safety Report 8405749-1 (Version None)
Quarter: 2012Q2

REPORT INFORMATION
  Report Type: 
  Country: None (occurrence: None)
  Receive Date: 20120530
  Receipt Date: 20120530
  Transmission Date: 20120825
  Serious: Yes (Other)
  Sender: FDA-Public Use
  Company Number: None

PATIENT
  Sex: Male

DRUGS (1)
  1. OLANZEPINE, 5 MG TABS - TEVA [Suspect]
     Indication: BIPOLAR DISORDER
     Dates: start: 20120121

REACTIONS (4)
  - NERVOUSNESS [None]
  - DRUG INEFFECTIVE [None]
  - PRODUCT SUBSTITUTION ISSUE [None]
  - PARANOIA [None]
